FAERS Safety Report 6240478-4 (Version None)
Quarter: 2009Q2

REPORT INFORMATION
  Report Type: 
  Country: None (occurrence: None)
  Receive Date: 20090623
  Receipt Date: 20090316
  Transmission Date: 20091009
  Serious: No
  Sender: FDA-Public Use
  Company Number: US-ASTRAZENECA-2009UW06728

PATIENT
  Age: 83 Year
  Sex: Female
  Weight: 50.3 kg

DRUGS (12)
  1. PULMICORT-100 [Suspect]
     Indication: DYSPNOEA
     Route: 055
     Dates: start: 20080813
  2. BROVANA [Concomitant]
     Indication: DYSPNOEA
  3. ADVAIR HFA [Concomitant]
     Indication: DYSPNOEA
  4. IPRATROPIUM BROMIDE [Concomitant]
     Indication: DYSPNOEA
  5. SYNTHROID [Concomitant]
  6. CELEXA [Concomitant]
  7. PLAVIX [Concomitant]
  8. CARDIZEM [Concomitant]
     Indication: BLOOD PRESSURE
  9. VITAMIN-MINERAL COMPOUND TAB [Concomitant]
     Indication: VISUAL IMPAIRMENT
  10. PROTONIX [Concomitant]
  11. KLONOPIN [Concomitant]
  12. ZOCOR [Concomitant]

REACTIONS (4)
  - HERPES ZOSTER [None]
  - ORAL CANDIDIASIS [None]
  - PNEUMONIA [None]
  - WEIGHT DECREASED [None]
